FAERS Safety Report 13725069 (Version 1)
Quarter: 2017Q3

REPORT INFORMATION
  Report Type: Spontaneous
  Country: US (occurrence: US)
  Receive Date: 20170706
  Receipt Date: 20170706
  Transmission Date: 20171127
  Serious: No
  Sender: FDA-Public Use
  Company Number: US-PFIZER INC-2017287860

PATIENT
  Age: 7 Decade
  Sex: Male
  Weight: 107 kg

DRUGS (1)
  1. GABAPENTIN. [Suspect]
     Active Substance: GABAPENTIN
     Indication: NEUROPATHY PERIPHERAL
     Dosage: 1800 MG, DAILY, ^AT NIGHTTIME^
     Route: 048
     Dates: start: 201605, end: 201705

REACTIONS (14)
  - Product use in unapproved indication [Unknown]
  - Nausea [Recovered/Resolved]
  - Decreased appetite [Unknown]
  - Feeling abnormal [Unknown]
  - Malaise [Unknown]
  - Irritability [Recovered/Resolved]
  - Anorgasmia [Recovered/Resolved]
  - Depressed mood [Recovered/Resolved]
  - Somnolence [Recovered/Resolved]
  - Weight decreased [Unknown]
  - Ejaculation failure [Recovered/Resolved]
  - Aggression [Recovered/Resolved]
  - Agitation [Recovered/Resolved]
  - Fatigue [Unknown]
